FAERS Safety Report 17776179 (Version 1)
Quarter: 2020Q2

REPORT INFORMATION
  Report Type: Spontaneous
  Country: FR (occurrence: FR)
  Receive Date: 20200513
  Receipt Date: 20200513
  Transmission Date: 20200714
  Serious: Yes (Other)
  Sender: FDA-Public Use
  Company Number: NVSC2020FR124869

PATIENT
  Age: 59 Year
  Sex: Female
  Weight: 74 kg

DRUGS (2)
  1. LYSAKARE [Suspect]
     Active Substance: ARGININE\LYSINE
     Indication: PROPHYLAXIS
     Dosage: 1 L (LYSINE 2.5 PERCENT, ARGININE 2.5 PERCENT)
     Route: 042
  2. LUTATHERA [Suspect]
     Active Substance: LUTETIUM OXODOTREOTIDE LU-177
     Indication: PRODUCT USED FOR UNKNOWN INDICATION
     Dosage: 7400 MBQ
     Route: 042

REACTIONS (6)
  - Asthenia [Unknown]
  - Blood pressure systolic decreased [Unknown]
  - Malaise [Unknown]
  - Bradycardia [Unknown]
  - Headache [Unknown]
  - Nausea [Unknown]

NARRATIVE: CASE EVENT DATE: 20200423
